FAERS Safety Report 16478465 (Version 1)
Quarter: 2019Q2

REPORT INFORMATION
  Report Type: Report from Study
  Country: ES (occurrence: ES)
  Receive Date: 20190626
  Receipt Date: 20190626
  Transmission Date: 20190711
  Serious: Yes (Hospitalization, Other)
  Sender: FDA-Public Use
  Company Number: ES-MYLANLABS-2019M1059364

PATIENT
  Age: 61 Year
  Sex: Female

DRUGS (1)
  1. RISEDRONATE [Suspect]
     Active Substance: RISEDRONATE SODIUM
     Indication: PROPHYLAXIS
     Route: 048
     Dates: start: 2008, end: 2011

REACTIONS (4)
  - Osteonecrosis of jaw [Recovered/Resolved]
  - Hyperpathia [Recovered/Resolved]
  - Hyperaesthesia [Recovered/Resolved]
  - Dysaesthesia [Recovered/Resolved]
